FAERS Safety Report 5248349-7 (Version None)
Quarter: 2007Q1

REPORT INFORMATION
  Report Type: 
  Country: None (occurrence: None)
  Receive Date: 20070227
  Receipt Date: 20060117
  Transmission Date: 20070707
  Serious: Yes (Death, Hospitalization)
  Sender: FDA-Public Use
  Company Number: US-BAXTER-2006BH000767

PATIENT
  Age: 18 Year
  Sex: Female

DRUGS (6)
  1. MEPERIDINE HCL [Suspect]
     Indication: AGITATION
     Route: 030
     Dates: start: 19840304
  2. MEPERIDINE HCL [Suspect]
     Indication: CHILLS
     Route: 030
     Dates: start: 19840304
  3. PHENELZINE [Concomitant]
     Indication: STRESS
     Dosage: DOSE UNIT:UNKNOWN
     Route: 065
  4. PERCODAN [Concomitant]
     Indication: PAIN
     Dosage: DOSE UNIT:UNKNOWN
     Route: 065
  5. ERYTHROMYCIN [Concomitant]
     Indication: PYREXIA
     Dosage: DOSE UNIT:UNKNOWN
     Route: 065
  6. CHLORPHENIRAMINE MALEATE [Concomitant]
     Indication: PYREXIA
     Dosage: DOSE UNIT:UNKNOWN
     Route: 065

REACTIONS (4)
  - CIRCULATORY COLLAPSE [None]
  - DRUG INTERACTION [None]
  - HYPERPYREXIA [None]
  - MEDICATION ERROR [None]
